FAERS Safety Report 8540801-1 (Version None)
Quarter: 2012Q3

REPORT INFORMATION
  Report Type: 
  Country: None (occurrence: None)
  Receive Date: 20120726
  Receipt Date: 20120627
  Transmission Date: 20120928
  Serious: No
  Sender: FDA-Public Use
  Company Number: US-ASTRAZENECA-2012SE43468

PATIENT
  Age: 74 Year
  Sex: Female
  Weight: 102.5 kg

DRUGS (2)
  1. PULMICORT FLEXHALER [Suspect]
     Dosage: 2 PUFFS TWICE DAILY
     Route: 055
     Dates: start: 20120627
  2. PULMICORT FLEXHALER [Suspect]
     Indication: ASTHMA
     Dosage: 3 PUFFS TWICE DAILY
     Route: 055
     Dates: start: 20120601, end: 20120627

REACTIONS (4)
  - MALAISE [None]
  - DYSPHONIA [None]
  - OFF LABEL USE [None]
  - LARYNGITIS [None]
